FAERS Safety Report 26101295 (Version 1)
Quarter: 2025Q4

REPORT INFORMATION
  Report Type: Spontaneous
  Country: US (occurrence: US)
  Receive Date: 20251128
  Receipt Date: 20251128
  Transmission Date: 20260117
  Serious: No
  Sender: MERCK SHARP & DOHME LLC
  Company Number: US-009507513-2348429

PATIENT
  Age: 8 Year

DRUGS (1)
  1. IVERMECTIN [Suspect]
     Active Substance: IVERMECTIN
     Indication: Onchocerciasis
     Dosage: TIME INTERVAL: TOTAL
     Route: 048
     Dates: start: 202405

REACTIONS (1)
  - Off label use [Unknown]
